FAERS Safety Report 23937224 (Version 2)
Quarter: 2024Q2

REPORT INFORMATION
  Report Type: Report from Study
  Country: MX (occurrence: MX)
  Receive Date: 20240604
  Receipt Date: 20240621
  Transmission Date: 20240716
  Serious: Yes (Other)
  Sender: FDA-Public Use
  Company Number: MX-002147023-NVSC2024MX078421

PATIENT
  Age: 56 Year
  Sex: Female
  Weight: 97 kg

DRUGS (4)
  1. KISQALI [Suspect]
     Active Substance: RIBOCICLIB
     Indication: Breast cancer
     Dosage: 600 MG, QD (3 OF  200MG) ONCE A  DAY/3 TABLETS  AT NIGHT
     Route: 048
     Dates: start: 20240206
  2. KISQALI [Suspect]
     Active Substance: RIBOCICLIB
     Indication: Hepatic cancer
     Dosage: 600 MG, QD (3 X 200MG, DAILY/EVERY 24 HOURS/AT NIGHT)
     Route: 048
  3. KISQALI [Suspect]
     Active Substance: RIBOCICLIB
     Indication: Bone cancer
     Dosage: 3 DOSAGE FORM (3X200MG) AT NIGHT
     Route: 048
  4. KISQALI [Suspect]
     Active Substance: RIBOCICLIB
     Indication: Metastases to bone
     Dosage: 600 MG, QD (3 TABLETS OF 200 MG, AT NIGHT)
     Route: 048

REACTIONS (24)
  - Hallucination [Not Recovered/Not Resolved]
  - Dizziness [Recovered/Resolved]
  - Food aversion [Not Recovered/Not Resolved]
  - Abdominal discomfort [Not Recovered/Not Resolved]
  - Malaise [Not Recovered/Not Resolved]
  - Mood altered [Not Recovered/Not Resolved]
  - Myoclonus [Not Recovered/Not Resolved]
  - Nausea [Not Recovered/Not Resolved]
  - Constipation [Not Recovered/Not Resolved]
  - Back pain [Not Recovered/Not Resolved]
  - Insomnia [Not Recovered/Not Resolved]
  - Weight decreased [Unknown]
  - Decreased appetite [Unknown]
  - Depression [Unknown]
  - Feeling abnormal [Unknown]
  - Asthenia [Unknown]
  - Fatigue [Unknown]
  - Dehydration [Unknown]
  - Depressed mood [Unknown]
  - Vomiting [Recovered/Resolved]
  - Headache [Unknown]
  - Feeling drunk [Unknown]
  - Oropharyngeal pain [Not Recovered/Not Resolved]
  - Nightmare [Unknown]

NARRATIVE: CASE EVENT DATE: 20240206
